FAERS Safety Report 17662293 (Version 2)
Quarter: 2020Q2

REPORT INFORMATION
  Report Type: Spontaneous
  Country: US (occurrence: US)
  Receive Date: 20200413
  Receipt Date: 20200430
  Transmission Date: 20200713
  Serious: No
  Sender: FDA-Public Use
  Company Number: US-BEH-2020115321

PATIENT
  Age: 57 Year
  Sex: Female
  Weight: 103.86 kg

DRUGS (10)
  1. MONTELUKAST [Concomitant]
     Active Substance: MONTELUKAST SODIUM
     Dosage: 10 MILLIGRAM, HS
     Route: 065
     Dates: start: 20190710
  2. QNASL [Concomitant]
     Active Substance: BECLOMETHASONE DIPROPIONATE
     Dosage: 80 MICROGRAM, 1-2 SP., QD
     Route: 065
     Dates: start: 20160913
  3. PROAIR HFA [Concomitant]
     Active Substance: ALBUTEROL SULFATE
     Dosage: 108 MICROGRAM, 2 PUFFS, PRN
     Route: 065
     Dates: start: 20170921
  4. ESTRADIOL. [Concomitant]
     Active Substance: ESTRADIOL
     Dosage: TABLET, QD
     Route: 065
     Dates: start: 20190122
  5. HIZENTRA [Suspect]
     Active Substance: HUMAN IMMUNOGLOBULIN G
     Indication: IMMUNODEFICIENCY COMMON VARIABLE
     Dosage: 16 GRAM, QOW
     Route: 058
     Dates: start: 20190919
  6. LEVOTHYROXINE. [Concomitant]
     Active Substance: LEVOTHYROXINE
     Dosage: 2 DOSE, QD
     Route: 065
     Dates: start: 20180710
  7. SYMBICORT [Concomitant]
     Active Substance: BUDESONIDE\FORMOTEROL FUMARATE DIHYDRATE
     Dosage: 2 PUFFS, BID
     Route: 065
     Dates: start: 20180213
  8. ZYRTEC [Concomitant]
     Active Substance: CETIRIZINE HYDROCHLORIDE
     Dosage: 10 MILLIGRAM, HS
     Route: 048
  9. FLUTICASONE. [Concomitant]
     Active Substance: FLUTICASONE
     Dosage: 50 MICROGRAM, 1-2 SP., QD
     Route: 065
     Dates: start: 20160328
  10. CELEXA [CELECOXIB] [Concomitant]
     Active Substance: CELECOXIB
     Dosage: TABLET, QD
     Route: 065
     Dates: start: 20130905

REACTIONS (1)
  - Weight decreased [Unknown]
